FAERS Safety Report 8713788 (Version 2)
Quarter: 2013Q3

REPORT INFORMATION
  Report Type: Spontaneous
  Country: US (occurrence: US)
  Receive Date: 20120808
  Receipt Date: 20130930
  Transmission Date: 20140515
  Serious: No
  Sender: FDA-Public Use
  Company Number: US-ASTRAZENECA-2012SE29296

PATIENT
  Age: 57 Year
  Sex: Male
  Weight: 63.5 kg

DRUGS (9)
  1. NEXIUM [Suspect]
     Indication: GASTROOESOPHAGEAL REFLUX DISEASE
     Route: 048
     Dates: start: 2008, end: 20130915
  2. PRILOSEC [Suspect]
     Route: 048
  3. XANAX [Concomitant]
     Indication: ANXIETY
  4. XANAX [Concomitant]
     Indication: DEPRESSION
  5. LEXAPRO [Concomitant]
     Indication: ANXIETY
  6. LEXAPRO [Concomitant]
     Indication: ANTIDEPRESSANT THERAPY
  7. SEROQUEL [Concomitant]
  8. PROTONIX [Concomitant]
  9. HYDROCHLORITHIAZIDE [Concomitant]
     Indication: BLOOD PRESSURE ABNORMAL

REACTIONS (13)
  - Gastrooesophageal reflux disease [Unknown]
  - Anxiety [Unknown]
  - Bipolar disorder [Unknown]
  - Choking [Unknown]
  - Regurgitation [Unknown]
  - Gastrooesophageal reflux disease [Unknown]
  - Panic attack [Unknown]
  - Depression [Unknown]
  - Dizziness [Unknown]
  - Dizziness [Unknown]
  - Drug ineffective [Unknown]
  - Drug dose omission [Unknown]
  - Intentional drug misuse [Unknown]
